FAERS Safety Report 4535048-X (Version None)
Quarter: 2004Q4

REPORT INFORMATION
  Report Type: 
  Country: None (occurrence: None)
  Receive Date: 20041214
  Receipt Date: 20040811
  Transmission Date: 20050328
  Serious: No
  Sender: FDA-Public Use
  Company Number: USA040875240

PATIENT
  Age: 73 Year
  Sex: Male
  Weight: 75 kg

DRUGS (9)
  1. CIALIS [Suspect]
     Indication: ERECTILE DYSFUNCTION
     Dosage: 20 MG
     Dates: start: 20040801
  2. PHENYTOIN [Concomitant]
  3. ENALAPRIL [Concomitant]
  4. SPIRONOLACTONE [Concomitant]
  5. FUROSEMIDE [Concomitant]
  6. POTASSIUM CHLORIDE [Concomitant]
  7. LIPITOR [Concomitant]
  8. DIGOXIN [Concomitant]
  9. FOLIC ACID [Concomitant]

REACTIONS (1)
  - THERAPEUTIC RESPONSE DECREASED [None]
